FAERS Safety Report 9231826 (Version 1)
Quarter: 2013Q2

REPORT INFORMATION
  Report Type: Spontaneous
  Country: US (occurrence: US)
  Receive Date: 20130415
  Receipt Date: 20130415
  Transmission Date: 20140414
  Serious: Yes (Other)
  Sender: FDA-Public Use
  Company Number: US-PFIZER INC-2013113813

PATIENT
  Sex: 0

DRUGS (2)
  1. TOVIAZ [Suspect]
     Dosage: 4 MG, UNK
     Dates: start: 201303
  2. TOVIAZ [Suspect]
     Dosage: 8 MG, UNK

REACTIONS (5)
  - Dysuria [Unknown]
  - Eye pain [Unknown]
  - Dizziness [Unknown]
  - Feeling abnormal [Unknown]
  - Drug ineffective [Unknown]
